FAERS Safety Report 8473443-7 (Version None)
Quarter: 2012Q2

REPORT INFORMATION
  Report Type: 
  Country: None (occurrence: None)
  Receive Date: 20120628
  Receipt Date: 20120615
  Transmission Date: 20120825
  Serious: Yes (Hospitalization, Other)
  Sender: FDA-Public Use
  Company Number: US-ELI_LILLY_AND_COMPANY-US201206006060

PATIENT
  Sex: Male

DRUGS (3)
  1. HUMALOG [Suspect]
     Dosage: 1 DF, PRN
  2. HUMALOG [Suspect]
     Dosage: 1 DF, PRN
  3. HUMALOG [Suspect]
     Indication: TYPE 1 DIABETES MELLITUS
     Dosage: UNK, UNKNOWN

REACTIONS (5)
  - PANCREAS TRANSPLANT REJECTION [None]
  - DIALYSIS [None]
  - CEREBROVASCULAR ACCIDENT [None]
  - PANCREAS TRANSPLANT [None]
  - INCORRECT DOSE ADMINISTERED [None]
